FAERS Safety Report 16335453 (Version 1)
Quarter: 2019Q2

REPORT INFORMATION
  Report Type: Spontaneous
  Country: US (occurrence: US)
  Receive Date: 20190521
  Receipt Date: 20190521
  Transmission Date: 20190711
  Serious: No
  Sender: FDA-Public Use
  Company Number: US-TECHNOMED INC.-2067247

PATIENT
  Sex: Female

DRUGS (24)
  1. NORVASC [Concomitant]
     Active Substance: AMLODIPINE BESYLATE
  2. CARTIA XT [Concomitant]
     Active Substance: DILTIAZEM HYDROCHLORIDE
  3. CATAPRES-TTS [Suspect]
     Active Substance: CLONIDINE
     Indication: PRODUCT USED FOR UNKNOWN INDICATION
  4. FOSAMAX [Concomitant]
     Active Substance: ALENDRONATE SODIUM
  5. FENTANYL. [Concomitant]
     Active Substance: FENTANYL
  6. LOSARTAN. [Concomitant]
     Active Substance: LOSARTAN
  7. LETAIRIS [Concomitant]
     Active Substance: AMBRISENTAN
  8. VERAPAMIL [Concomitant]
     Active Substance: VERAPAMIL HYDROCHLORIDE
  9. NIFEDICAL XL [Concomitant]
     Active Substance: NIFEDIPINE
  10. TRAMADOL. [Concomitant]
     Active Substance: TRAMADOL
  11. ASPIRIN. [Concomitant]
     Active Substance: ASPIRIN
  12. PAMELOR [Concomitant]
     Active Substance: NORTRIPTYLINE HYDROCHLORIDE
  13. LISINOPRIL. [Concomitant]
     Active Substance: LISINOPRIL
  14. DIOVAN [Concomitant]
     Active Substance: VALSARTAN
  15. CARVEDILOL. [Concomitant]
     Active Substance: CARVEDILOL
  16. SULFA [Concomitant]
     Active Substance: UNSPECIFIED INGREDIENT
  17. ATIVAN [Concomitant]
     Active Substance: LORAZEPAM
  18. MELATONIN [Concomitant]
     Active Substance: MELATONIN
  19. PLAVIX [Concomitant]
     Active Substance: CLOPIDOGREL BISULFATE
  20. BACITRACIN. [Concomitant]
     Active Substance: BACITRACIN
     Route: 061
  21. SULAR [Concomitant]
     Active Substance: NISOLDIPINE
  22. AMIODARONE HYDROCHLORIDE. [Concomitant]
     Active Substance: AMIODARONE HYDROCHLORIDE
  23. HYDRALAZINE [Concomitant]
     Active Substance: HYDRALAZINE HYDROCHLORIDE
  24. PRADAXA [Concomitant]
     Active Substance: DABIGATRAN ETEXILATE MESYLATE

REACTIONS (3)
  - Alopecia [Unknown]
  - Heart rate irregular [Unknown]
  - Hypertension [Unknown]
